FAERS Safety Report 11908459 (Version 2)
Quarter: 2016Q1

REPORT INFORMATION
  Report Type: Spontaneous
  Country: US (occurrence: US)
  Receive Date: 20160111
  Receipt Date: 20160201
  Transmission Date: 20160526
  Serious: No
  Sender: FDA-Public Use
  Company Number: US-GLAXOSMITHKLINE-US2016001773

PATIENT
  Sex: Female

DRUGS (1)
  1. ANORO ELLIPTA [Suspect]
     Active Substance: UMECLIDINIUM BROMIDE\VILANTEROL TRIFENATATE
     Indication: DYSPNOEA
     Dosage: 1 DF, 1D
     Dates: end: 201601

REACTIONS (4)
  - Emotional distress [Unknown]
  - Product use issue [Unknown]
  - Drug dispensing error [Unknown]
  - Drug ineffective for unapproved indication [Not Recovered/Not Resolved]
